FAERS Safety Report 14784376 (Version 2)
Quarter: 2018Q2

REPORT INFORMATION
  Report Type: Spontaneous
  Country: US (occurrence: US)
  Receive Date: 20180420
  Receipt Date: 20180524
  Transmission Date: 20180711
  Serious: No
  Sender: FDA-Public Use
  Company Number: US-ASTRAZENECA-2018SE46807

PATIENT
  Age: 10 Month
  Sex: Male
  Weight: 9.1 kg

DRUGS (1)
  1. SYNAGIS [Suspect]
     Active Substance: PALIVIZUMAB
     Dosage: UNKNOWN
     Route: 030

REACTIONS (3)
  - Malaise [Unknown]
  - Intentional product misuse [Unknown]
  - Bronchiolitis [Unknown]
